FAERS Safety Report 4685924-2 (Version None)
Quarter: 2005Q2

REPORT INFORMATION
  Report Type: 
  Country: None (occurrence: None)
  Receive Date: 20050606
  Receipt Date: 20050525
  Transmission Date: 20051028
  Serious: Yes (Death, Hospitalization)
  Sender: FDA-Public Use
  Company Number: HQWYE006112MAR03

PATIENT
  Age: 59 Year
  Sex: Female
  Weight: 45.85 kg

DRUGS (17)
  1. MYLOTARG [Suspect]
     Indication: ACUTE MYELOID LEUKAEMIA
     Dosage: 9 MG/M^2 1X PER 1 DAY, INTRAVENOUS
     Route: 042
     Dates: start: 20030213, end: 20030213
  2. MYLOTARG [Suspect]
     Indication: ACUTE MYELOID LEUKAEMIA
     Dosage: 9 MG/M^2 1X PER 1 DAY, INTRAVENOUS
     Route: 042
     Dates: start: 20030226, end: 20030226
  3. ASPIRIN [Concomitant]
  4. LANOXIN [Concomitant]
  5. ENALAPRIL MALEATE [Concomitant]
  6. ACYCLOVIR [Concomitant]
  7. PROZAC [Concomitant]
  8. DEMECLOCYCLINE (DEMECLOCYCLINE) [Concomitant]
  9. DIFLUCAN [Concomitant]
  10. SYNTHROID [Concomitant]
  11. ESTRATEST [Concomitant]
  12. PROTONIX [Concomitant]
  13. KAY CIEL DURA-TABS [Concomitant]
  14. XANAX [Concomitant]
  15. ALLEGRA [Concomitant]
  16. CLINDAMYCIN [Concomitant]
  17. BIAXIN [Concomitant]

REACTIONS (5)
  - ACUTE MYELOID LEUKAEMIA [None]
  - FEBRILE NEUTROPENIA [None]
  - MALIGNANT NEOPLASM PROGRESSION [None]
  - PANCYTOPENIA [None]
  - STREPTOCOCCAL INFECTION [None]
